FAERS Safety Report 17581369 (Version 1)
Quarter: 2020Q1

REPORT INFORMATION
  Report Type: Spontaneous
  Country: US (occurrence: US)
  Receive Date: 20200325
  Receipt Date: 20200325
  Transmission Date: 20200409
  Serious: Yes (Hospitalization)
  Sender: FDA-Public Use
  Company Number: None

PATIENT
  Age: 49 Year
  Sex: Female
  Weight: 60.75 kg

DRUGS (1)
  1. CIPROFLOXACIN. [Suspect]
     Active Substance: CIPROFLOXACIN
     Indication: URINARY TRACT INFECTION
     Dosage: ?          QUANTITY:1 TABLET(S);?
     Route: 048
     Dates: start: 20200321, end: 20200322

REACTIONS (10)
  - Heart rate increased [None]
  - Anxiety [None]
  - White blood cell count increased [None]
  - Palpitations [None]
  - Adverse drug reaction [None]
  - Paraesthesia [None]
  - Panic attack [None]
  - Syncope [None]
  - Blood pressure increased [None]
  - Myalgia [None]

NARRATIVE: CASE EVENT DATE: 20200322
